FAERS Safety Report 8026778-6 (Version None)
Quarter: 2012Q1

REPORT INFORMATION
  Report Type: 
  Country: None (occurrence: None)
  Receive Date: 20120106
  Receipt Date: 20111230
  Transmission Date: 20120608
  Serious: No
  Sender: FDA-Public Use
  Company Number: US-BIOGENIDEC-2011BI049114

PATIENT
  Sex: Female

DRUGS (1)
  1. AVONEX [Suspect]
     Indication: MULTIPLE SCLEROSIS
     Route: 030
     Dates: start: 20111223

REACTIONS (6)
  - NERVOUSNESS [None]
  - MOBILITY DECREASED [None]
  - MUSCULOSKELETAL DISORDER [None]
  - HYPOAESTHESIA [None]
  - CHILLS [None]
  - TREMOR [None]
